FAERS Safety Report 5322903-6 (Version None)
Quarter: 2007Q2

REPORT INFORMATION
  Report Type: 
  Country: None (occurrence: None)
  Receive Date: 20070511
  Receipt Date: 20070502
  Transmission Date: 20071010
  Serious: Yes (Death, Other)
  Sender: FDA-Public Use
  Company Number: AU-PFIZER INC-2007036899

PATIENT
  Sex: Male
  Weight: 128.6 kg

DRUGS (5)
  1. LIPITOR [Suspect]
     Indication: HYPERCHOLESTEROLAEMIA
     Route: 048
  2. CLOZAPINE [Suspect]
     Indication: SCHIZOPHRENIA
     Dosage: DAILY DOSE:350MG
     Route: 048
     Dates: start: 20051014, end: 20070117
  3. CLOZAPINE [Suspect]
  4. METFORMIN HCL [Suspect]
     Indication: DIABETES MELLITUS
     Dosage: TEXT:500
     Route: 048
  5. DIAMICRON [Suspect]
     Dosage: DAILY DOSE:30MG
     Route: 048

REACTIONS (1)
  - DEATH [None]
